FAERS Safety Report 8532310-0 (Version None)
Quarter: 2012Q3

REPORT INFORMATION
  Report Type: 
  Country: None (occurrence: None)
  Receive Date: 20120724
  Receipt Date: 20120711
  Transmission Date: 20120928
  Serious: Yes (Other)
  Sender: FDA-Public Use
  Company Number: JP-AMGEN-JPNSP2012041046

PATIENT
  Age: 59 Year
  Sex: Female

DRUGS (16)
  1. METHOTREXATE SODIUM [Suspect]
     Dosage: 8 MG, WEEKLY
  2. PREDNISOLONE [Concomitant]
     Dosage: 8 MG, 1X/DAY
  3. ENBREL [Suspect]
     Indication: RHEUMATOID ARTHRITIS
     Dosage: UNK
     Route: 058
  4. RHEUMATREX [Suspect]
     Dosage: 10 MG, WEEKLY
     Route: 048
  5. PREDNISOLONE [Concomitant]
     Dosage: 7 MG, 1X/DAY
  6. PREDNISOLONE [Concomitant]
     Dosage: 5 MG, UNK
  7. RHEUMATREX [Suspect]
     Indication: RHEUMATOID ARTHRITIS
     Dosage: 8 MG, WEEKLY
     Route: 048
  8. RHEUMATREX [Suspect]
     Dosage: 6 MG, WEEKLY
     Route: 048
  9. METHOTREXATE SODIUM [Suspect]
     Dosage: 6 MG, WEEKLY
  10. PREDNISOLONE [Concomitant]
     Dosage: 5 MG, UNK
  11. METHOTREXATE SODIUM [Suspect]
     Dosage: 10 MG, WEEKLY
  12. INFLIXIMAB [Concomitant]
     Indication: RHEUMATOID ARTHRITIS
     Dosage: UNK
  13. PREDNISOLONE [Concomitant]
     Dosage: 8 MG, 1X/DAY
  14. METHOTREXATE SODIUM [Suspect]
     Indication: RHEUMATOID ARTHRITIS
     Dosage: 8 MG, WEEKLY
     Route: 048
  15. PREDNISOLONE [Concomitant]
     Indication: RHEUMATOID ARTHRITIS
     Dosage: 8 MG, 1X/DAY
  16. PREDNISOLONE [Concomitant]
     Dosage: 7 MG, 1X/DAY

REACTIONS (8)
  - RHEUMATOID ARTHRITIS [None]
  - NAUSEA [None]
  - UPPER RESPIRATORY TRACT INFLAMMATION [None]
  - BONE MARROW FAILURE [None]
  - EPIGASTRIC DISCOMFORT [None]
  - HERPES ZOSTER [None]
  - ERUCTATION [None]
  - DIARRHOEA [None]
